FAERS Safety Report 11124149 (Version 1)
Quarter: 2015Q2

REPORT INFORMATION
  Report Type: Spontaneous
  Country: MY (occurrence: None)
  Receive Date: 20150518
  Receipt Date: 20150518
  Transmission Date: 20150821
  Serious: Yes (Death, Other)
  Sender: FDA-Public Use
  Company Number: MY2015GSK065896

PATIENT
  Age: 37 Year
  Sex: Male

DRUGS (5)
  1. CO-TRIMAXAZOL (SULFAMETHOXAZOLE, TRIMETHOPRIM, SULFAMETHOXAZOLE, TRIMETHOPRIM, SULFAMETHOXAZOLE, TRIMETHOPRIM, SULFAMETHOXAZOLE, TRIMETHOPRIM, SULFAMETHOXAZOLE, TRIMETHOPRIM, SULFAMETHOXAZOLE, TRIMETHOPRIM, SULFAMETHOXAZOLE, TRIMETHOPRIM) [Concomitant]
  2. CLINDAMYCIN [Concomitant]
     Active Substance: CLINDAMYCIN\CLINDAMYCIN PHOSPHATE
  3. PYRIMETHAMIN [Concomitant]
  4. EFAVIRENZ [Concomitant]
     Active Substance: EFAVIRENZ
  5. COMBIVIR [Suspect]
     Active Substance: LAMIVUDINE\ZIDOVUDINE
     Indication: HIV INFECTION
     Route: 048

REACTIONS (2)
  - Lactic acidosis [None]
  - Anaemia [None]

NARRATIVE: CASE EVENT DATE: 201404
